FAERS Safety Report 11344977 (Version 1)
Quarter: 2015Q3

REPORT INFORMATION
  Report Type: Spontaneous
  Country: US (occurrence: None)
  Receive Date: 20150805
  Receipt Date: 20150805
  Transmission Date: 20151125
  Serious: No
  Sender: FDA-Public Use
  Company Number: None

PATIENT
  Age: 62 Year
  Sex: Male
  Weight: 88 kg

DRUGS (1)
  1. BENZOCAINE 20% TOP SOLUTION [Suspect]
     Active Substance: BENZOCAINE
     Indication: MUCOSAL INFLAMMATION
     Dosage: 7/13 1702 - 7/14 1400?200MG/1ML
     Route: 048

REACTIONS (2)
  - Methaemoglobinaemia [None]
  - Oxygen saturation decreased [None]

NARRATIVE: CASE EVENT DATE: 20150714
